FAERS Safety Report 7935306-2 (Version None)
Quarter: 2011Q4

REPORT INFORMATION
  Report Type: 
  Country: None (occurrence: None)
  Receive Date: 20111122
  Receipt Date: 20111107
  Transmission Date: 20120403
  Serious: Yes (Hospitalization)
  Sender: FDA-Public Use
  Company Number: KR-WATSON-2011-19680

PATIENT
  Age: 60 Year
  Sex: Male

DRUGS (1)
  1. BUPROPION HCL [Suspect]
     Indication: MAJOR DEPRESSION

REACTIONS (3)
  - HYPONATRAEMIA [None]
  - ASTHENIA [None]
  - FATIGUE [None]
